FAERS Safety Report 17859548 (Version 1)
Quarter: 2020Q2

REPORT INFORMATION
  Report Type: Spontaneous
  Country: US (occurrence: US)
  Receive Date: 20200604
  Receipt Date: 20200604
  Transmission Date: 20200714
  Serious: Yes (Life-Threatening, Hospitalization)
  Sender: FDA-Public Use
  Company Number: NVSC2020US153821

PATIENT
  Age: 80 Year
  Sex: Female

DRUGS (5)
  1. METHYLPREDNISOLONE. [Suspect]
     Active Substance: METHYLPREDNISOLONE
     Indication: ANGIOEDEMA
     Dosage: 125 MG
     Route: 042
  2. LISINOPRIL. [Suspect]
     Active Substance: LISINOPRIL
     Indication: HYPERTENSION
     Dosage: UNK
     Route: 065
  3. EPINEPHRINE HYDROGENTARTRATE [Suspect]
     Active Substance: EPINEPHRINE BITARTRATE
     Indication: ANGIOEDEMA
     Dosage: 0.3 MG
     Route: 030
  4. DIPHENHYDRAMINE. [Suspect]
     Active Substance: DIPHENHYDRAMINE
     Indication: ANGIOEDEMA
     Dosage: 50 MG
     Route: 042
  5. RANITIDINE. [Suspect]
     Active Substance: RANITIDINE
     Indication: ANGIOEDEMA
     Dosage: 50 MG
     Route: 042

REACTIONS (4)
  - Angioedema [Recovered/Resolved]
  - Disease progression [Recovered/Resolved]
  - Dyspnoea [Unknown]
  - Product use in unapproved indication [Unknown]
